FAERS Safety Report 14847399 (Version 1)
Quarter: 2018Q2

REPORT INFORMATION
  Report Type: Spontaneous
  Country: JP (occurrence: JP)
  Receive Date: 20180504
  Receipt Date: 20180504
  Transmission Date: 20180711
  Serious: Yes (Other)
  Sender: FDA-Public Use
  Company Number: JP-PFIZER INC-2018171537

PATIENT
  Sex: Female

DRUGS (1)
  1. LYRICA [Suspect]
     Active Substance: PREGABALIN
     Dosage: UNK
     Route: 048

REACTIONS (6)
  - Cataract [Unknown]
  - Dizziness [Unknown]
  - Hypersensitivity [Unknown]
  - Somnolence [Unknown]
  - Ocular hyperaemia [Unknown]
  - Eyelid oedema [Unknown]
